FAERS Safety Report 7968858-7 (Version None)
Quarter: 2011Q4

REPORT INFORMATION
  Report Type: 
  Country: None (occurrence: None)
  Receive Date: 20111209
  Receipt Date: 20111202
  Transmission Date: 20120403
  Serious: Yes (Hospitalization)
  Sender: FDA-Public Use
  Company Number: PHHY2011JP89377

PATIENT
  Age: 74 Year
  Sex: Male

DRUGS (4)
  1. FLUOROURACIL [Suspect]
     Dosage: 600 MG/M2, UNK
  2. OXALIPLATIN [Suspect]
     Dosage: 85 MG/M2, UNK
  3. LEUCOVORIN CALCIUM [Suspect]
     Dosage: 100 MG/M2, UNK
  4. FLUOROURACIL [Suspect]
     Dosage: 400 MG/M2, UNK

REACTIONS (10)
  - PSEUDOMEMBRANOUS COLITIS [None]
  - PYREXIA [None]
  - INTESTINAL OBSTRUCTION [None]
  - FEBRILE NEUTROPENIA [None]
  - DIARRHOEA [None]
  - LEUKOPENIA [None]
  - STOMATITIS [None]
  - TACHYCARDIA [None]
  - BLOOD PRESSURE DECREASED [None]
  - DISSEMINATED INTRAVASCULAR COAGULATION [None]
